FAERS Safety Report 14712095 (Version 1)
Quarter: 2018Q2

REPORT INFORMATION
  Report Type: Spontaneous
  Country: US (occurrence: US)
  Receive Date: 20180404
  Receipt Date: 20180404
  Transmission Date: 20180711
  Serious: No
  Sender: FDA-Public Use
  Company Number: US-SA-2017SA043480

PATIENT
  Age: 17 Year
  Sex: Female

DRUGS (2)
  1. ALLEGRA-D 24 HOUR [Suspect]
     Active Substance: FEXOFENADINE HYDROCHLORIDE\PSEUDOEPHEDRINE HYDROCHLORIDE
     Indication: LACRIMATION INCREASED
     Dosage: DOSE 180/240 MG
     Route: 065
     Dates: start: 20170219, end: 20170221
  2. ALLEGRA-D 24 HOUR [Suspect]
     Active Substance: FEXOFENADINE HYDROCHLORIDE\PSEUDOEPHEDRINE HYDROCHLORIDE
     Indication: SNEEZING
     Dosage: DOSE 180/240 MG
     Route: 065
     Dates: start: 20170219, end: 20170221

REACTIONS (3)
  - Sneezing [Unknown]
  - Lacrimation increased [Unknown]
  - Drug ineffective [Unknown]
